FAERS Safety Report 20126626 (Version 1)
Quarter: 2021Q4

REPORT INFORMATION
  Report Type: Report from Study
  Country: US (occurrence: US)
  Receive Date: 20211129
  Receipt Date: 20211129
  Transmission Date: 20220303
  Serious: Yes (Hospitalization)
  Sender: FDA-Public Use
  Company Number: US-BRISTOL-MYERS SQUIBB COMPANY-BMS-2021-126809

PATIENT
  Age: 68 Year
  Sex: Female
  Weight: 102.49 kg

DRUGS (4)
  1. APIXABAN [Suspect]
     Active Substance: APIXABAN
     Indication: Cerebrovascular accident prophylaxis
     Dosage: 5 MILLIGRAM, BID
     Route: 048
     Dates: start: 2018
  2. ATORVASTATIN [Concomitant]
     Active Substance: ATORVASTATIN
     Indication: Product used for unknown indication
     Dosage: 40 MILLIGRAM, QD
     Route: 065
  3. SOTALOL [Concomitant]
     Active Substance: SOTALOL
     Indication: Product used for unknown indication
     Dosage: 80 MILLIGRAM, BID
     Route: 065
  4. VITAMINS [Concomitant]
     Active Substance: VITAMINS
     Indication: Product used for unknown indication
     Dosage: UNK UNK, QD
     Route: 065

REACTIONS (8)
  - Influenza [Unknown]
  - Joint injury [Unknown]
  - Pain in extremity [Not Recovered/Not Resolved]
  - Fall [Unknown]
  - Limb mass [Recovered/Resolved]
  - Arthritis [Unknown]
  - Muscle tightness [Unknown]
  - Body height decreased [Unknown]

NARRATIVE: CASE EVENT DATE: 20180101
